FAERS Safety Report 5623479-6 (Version None)
Quarter: 2008Q1

REPORT INFORMATION
  Report Type: 
  Country: None (occurrence: None)
  Receive Date: 20080212
  Receipt Date: 20080131
  Transmission Date: 20080703
  Serious: Yes (Hospitalization)
  Sender: FDA-Public Use
  Company Number: FR-PFIZER INC-2008010165

PATIENT
  Sex: Female

DRUGS (8)
  1. ALDACTONE [Suspect]
     Route: 048
     Dates: start: 20071114, end: 20071120
  2. ATHYMIL [Suspect]
     Route: 048
     Dates: start: 20071118, end: 20071119
  3. DIFFU K [Suspect]
     Dosage: TEXT:5 DF-FREQ:DAILY
     Route: 048
     Dates: start: 20071118, end: 20071120
  4. DELURSAN [Concomitant]
  5. DUPHALAC [Concomitant]
  6. OMEPRAZOLE [Concomitant]
  7. IDARAC [Concomitant]
     Route: 048
     Dates: start: 20071113, end: 20071120
  8. LASILIX [Concomitant]
     Route: 048
     Dates: start: 20071114, end: 20071120

REACTIONS (1)
  - HEPATIC ENCEPHALOPATHY [None]
